FAERS Safety Report 23847629 (Version 14)
Quarter: 2025Q4

REPORT INFORMATION
  Report Type: Spontaneous
  Country: CA (occurrence: CA)
  Receive Date: 20240513
  Receipt Date: 20251003
  Transmission Date: 20260117
  Serious: Yes (Other)
  Sender: PFIZER
  Company Number: CA-PFIZER INC-202400091780

PATIENT
  Age: 61 Year
  Sex: Male

DRUGS (20)
  1. ABRILADA [Suspect]
     Active Substance: ADALIMUMAB-AFZB
     Indication: Crohn^s disease
     Dosage: 1 DF, WK0: 160 MG, WK2: 80MG, THEN 40MG EVERY OTHER WK STARTING WK4
     Route: 058
     Dates: start: 20240305
  2. ABRILADA [Suspect]
     Active Substance: ADALIMUMAB-AFZB
     Dosage: 1 DF, WK0: 160 MG, WK2: 80MG, THEN 40MG EVERY OTHER WK STARTING WK4
     Route: 058
     Dates: start: 20240404
  3. ABRILADA [Suspect]
     Active Substance: ADALIMUMAB-AFZB
     Dosage: 1 DF, WK0: 160 MG, WK2: 80MG, THEN 40MG EVERY OTHER WK STARTING WK4 (40MG AFTER 4 WEEKS AND 2 DAYS)
     Route: 058
     Dates: start: 20240418
  4. ABRILADA [Suspect]
     Active Substance: ADALIMUMAB-AFZB
     Dosage: 40 MG (2 WEEKS AND 5 DAYS)
     Route: 058
     Dates: start: 20240507
  5. ABRILADA [Suspect]
     Active Substance: ADALIMUMAB-AFZB
     Dosage: 1 DF, WK0: 160 MG, WK2: 80MG, THEN 40MG EVERY OTHER WK STARTING WK4
     Route: 058
     Dates: start: 20240826
  6. ABRILADA [Suspect]
     Active Substance: ADALIMUMAB-AFZB
     Dosage: 40 MG, 2 WEEKS (WK0: 160 MG, WK2: 80MG, THEN 40MG EVERY OTHER WK STARTING WK4 )
     Route: 058
     Dates: start: 20240909
  7. ABRILADA [Suspect]
     Active Substance: ADALIMUMAB-AFZB
     Dosage: 1 DF, WK0: 160 MG, WK2: 80MG, THEN 40MG EVERY OTHER WK STARTING WK4
     Route: 058
     Dates: start: 20241119
  8. ABRILADA [Suspect]
     Active Substance: ADALIMUMAB-AFZB
     Dosage: 40 MG,4 WEEKS, (EVERY 2 WEEKS), (1DF, WK0: 160 MG, WK2: 80MG, THEN 40MG EVERY OTHER WK STARTING WK4)
     Route: 058
     Dates: start: 20241217
  9. ABRILADA [Suspect]
     Active Substance: ADALIMUMAB-AFZB
     Dosage: 40 MG, 3 WEEKS AND 3 DAYS (1DF, WK0: 160 MG, WK2: 80MG, THEN 40MG EVERY OTHER WK)
     Route: 058
     Dates: start: 20250110
  10. ABRILADA [Suspect]
     Active Substance: ADALIMUMAB-AFZB
     Dosage: 1 DF WK0: 160 MG, WK2: 80MG, THEN 40MG EVERY OTHER WK
     Route: 058
     Dates: start: 20250121
  11. ABRILADA [Suspect]
     Active Substance: ADALIMUMAB-AFZB
     Dosage: 40 MG AFTER 2 WEEKS (WK0: 160 MG, WEEK2: 80MG, THEN 40MG EVERY OTHER WEEK)
     Route: 058
     Dates: start: 20250204
  12. ABRILADA [Suspect]
     Active Substance: ADALIMUMAB-AFZB
     Dosage: 40 MG, EVERY 2 WEEKS  (1 DF , WK0: 160 MG, WK2: 80MG, THEN 40MG EVERY OTHER WK)
     Route: 058
     Dates: start: 20250218
  13. ABRILADA [Suspect]
     Active Substance: ADALIMUMAB-AFZB
     Dosage: 1 DF WK0: 160 MG, WK2: 80MG, THEN 40MG EVERY OTHER WK
     Route: 058
     Dates: start: 20250317
  14. ABRILADA [Suspect]
     Active Substance: ADALIMUMAB-AFZB
     Dosage: 1 DF WK0: 160 MG, WK2: 80MG, THEN 40MG EVERY OTHER WK
     Route: 058
     Dates: start: 20250331
  15. ABRILADA [Suspect]
     Active Substance: ADALIMUMAB-AFZB
     Dosage: 40 MG, AFTER 8 WEEKS (PRESCRIBED: EVERY 2 WEEKS)
     Route: 058
     Dates: start: 20250526
  16. ABRILADA [Suspect]
     Active Substance: ADALIMUMAB-AFZB
     Dosage: 40 MG, PRESCRIBED: EVERY 2 WEEKS
     Route: 058
     Dates: start: 20250624
  17. ABRILADA [Suspect]
     Active Substance: ADALIMUMAB-AFZB
     Dosage: 40 MG, 2 WEEKS (PRESCRIBED: EVERY 2 WEEKS)
     Route: 058
     Dates: start: 20250707
  18. ABRILADA [Suspect]
     Active Substance: ADALIMUMAB-AFZB
     Dosage: 40 MG AFTER 3 WEEKS AND 1 DAY (PRESCRIBED TREATMENTS ARE EVERY 2 WEEKS)
     Route: 058
     Dates: start: 20250830
  19. ABRILADA [Suspect]
     Active Substance: ADALIMUMAB-AFZB
     Dosage: 40 MG, EVERY 2 WEEKS
     Route: 058
     Dates: start: 20250915
  20. ABRILADA [Suspect]
     Active Substance: ADALIMUMAB-AFZB
     Dosage: 40 MG, EVERY 2 WEEKS
     Route: 058
     Dates: start: 20250930

REACTIONS (21)
  - Abdominal pain [Recovering/Resolving]
  - Faeces hard [Unknown]
  - Tooth infection [Recovered/Resolved]
  - Anaemia [Unknown]
  - Blood iron decreased [Unknown]
  - Therapeutic product effect incomplete [Unknown]
  - Stomatitis [Not Recovered/Not Resolved]
  - Arthralgia [Not Recovered/Not Resolved]
  - Aphthous ulcer [Not Recovered/Not Resolved]
  - Oral mucosal blistering [Not Recovered/Not Resolved]
  - Odynophagia [Not Recovered/Not Resolved]
  - Condition aggravated [Not Recovered/Not Resolved]
  - Pharyngeal ulceration [Not Recovered/Not Resolved]
  - Gingival ulceration [Recovering/Resolving]
  - Dysphagia [Not Recovered/Not Resolved]
  - Fatigue [Not Recovered/Not Resolved]
  - Dizziness [Not Recovered/Not Resolved]
  - Brain fog [Not Recovered/Not Resolved]
  - Dyspnoea exertional [Not Recovered/Not Resolved]
  - Haemoglobin decreased [Unknown]
  - Inappropriate schedule of product administration [Unknown]

NARRATIVE: CASE EVENT DATE: 20240101
